FAERS Safety Report 4927537-0 (Version None)
Quarter: 2006Q1

REPORT INFORMATION
  Report Type: 
  Country: None (occurrence: None)
  Receive Date: 20060213
  Receipt Date: 20060131
  Transmission Date: 20060701
  Serious: Yes (Hospitalization)
  Sender: FDA-Public Use
  Company Number: FRWYE321407JAN05

PATIENT
  Age: 13 Month
  Sex: Male

DRUGS (2)
  1. REFACTO [Suspect]
     Indication: FACTOR VIII DEFICIENCY
     Dosage: 250 TO 500 IU PER INJECTION AS PROPHYLAXIS REGIMEN INTRAVENOUS; SEE IMAGE
     Route: 042
     Dates: start: 20040113, end: 20040101
  2. REFACTO [Suspect]
     Indication: FACTOR VIII DEFICIENCY
     Dosage: 250 TO 500 IU PER INJECTION AS PROPHYLAXIS REGIMEN INTRAVENOUS; SEE IMAGE
     Route: 042
     Dates: start: 20040101, end: 20041112

REACTIONS (2)
  - ANTI FACTOR VIII ANTIBODY POSITIVE [None]
  - ECCHYMOSIS [None]
